FAERS Safety Report 5324281-5 (Version None)
Quarter: 2007Q2

REPORT INFORMATION
  Report Type: 
  Country: None (occurrence: None)
  Receive Date: 20070220
  Receipt Date: 20070216
  Transmission Date: 20071010
  Serious: No
  Sender: FDA-Public Use
  Company Number: WAES 0701USA00454

PATIENT
  Age: 86 Year
  Sex: Female

DRUGS (4)
  1. JANUVIA [Suspect]
     Indication: DIABETES MELLITUS
     Dosage: 100 MG/DAILY/PO
     Route: 048
     Dates: start: 20061230, end: 20061230
  2. DIOVAN [Concomitant]
  3. HYTRIN [Concomitant]
  4. SYNTHROID [Concomitant]

REACTIONS (2)
  - FATIGUE [None]
  - SPEECH DISORDER [None]
